FAERS Safety Report 17230839 (Version 3)
Quarter: 2021Q4

REPORT INFORMATION
  Report Type: Report from Study
  Country: IE (occurrence: IE)
  Receive Date: 20200103
  Receipt Date: 20211202
  Transmission Date: 20220303
  Serious: Yes (Hospitalization, Disabling, Other)
  Sender: FDA-Public Use
  Company Number: IE-SA-2018SA232785

PATIENT
  Sex: Female

DRUGS (21)
  1. FENTANYL [Suspect]
     Active Substance: FENTANYL
     Indication: Product used for unknown indication
     Dosage: 100 UG, EVERY 72 HOURS
     Route: 065
  2. ALEMTUZUMAB [Suspect]
     Active Substance: ALEMTUZUMAB
     Indication: Multiple sclerosis
     Dosage: UNK
     Route: 041
  3. MIRTAZAPINE [Concomitant]
     Active Substance: MIRTAZAPINE
     Dosage: 15 MG, HS (NIGHT)
     Route: 065
  4. PROZAC [Concomitant]
     Active Substance: FLUOXETINE HYDROCHLORIDE
     Dosage: 60 MG, QD
     Route: 065
  5. IXPRIM [Concomitant]
     Active Substance: ACETAMINOPHEN\TRAMADOL HYDROCHLORIDE
     Dosage: 2 MILLIGRAM, PRN
     Route: 065
  6. ESOMEPRAZOLE [Concomitant]
     Active Substance: ESOMEPRAZOLE
     Dosage: 40 MG, QD
     Route: 065
  7. LIORESAL [Concomitant]
     Active Substance: BACLOFEN
     Dosage: 10 MG, BID
     Route: 065
  8. SOLPADOL                           /00116401/ [Concomitant]
     Dosage: 2 MILLIGRAM, Q8H
     Route: 065
  9. QUETIAPINE [Concomitant]
     Active Substance: QUETIAPINE
     Dosage: 50 MG, HS (NIGHT)
     Route: 065
  10. ROSUVASTATIN [Concomitant]
     Active Substance: ROSUVASTATIN
     Dosage: 10 MG, QD
     Route: 065
  11. CHOLECALCIFEROL [Concomitant]
     Active Substance: CHOLECALCIFEROL
     Dosage: 800 INTERNATIONAL UNIT, QD
     Route: 065
  12. VENTOLINE                          /00139501/ [Concomitant]
     Dosage: 200 UG; QDS
     Route: 065
  13. MOVICOL                            /01749801/ [Concomitant]
     Dosage: 1 MG, QD
     Route: 065
  14. VALIUM [Concomitant]
     Active Substance: DIAZEPAM
     Indication: Muscle spasms
     Dosage: 5 MG, PRN
     Route: 065
  15. SPASMONAL                          /00097002/ [Concomitant]
     Indication: Muscle spasms
     Dosage: 240 MG, QD
     Route: 065
  16. AMITRIPTYLINE [Concomitant]
     Active Substance: AMITRIPTYLINE
     Dosage: 10 MG, QD
     Route: 065
  17. CALCIUM CARBONATE\CHOLECALCIFEROL [Concomitant]
     Active Substance: CALCIUM CARBONATE\CHOLECALCIFEROL
     Dosage: 1 MG, BID
     Route: 065
  18. SYMMETREL [Concomitant]
     Active Substance: AMANTADINE HYDROCHLORIDE
     Dosage: 100 MILLIGRAM, BID
  19. SCHERIPROCT                        /00212301/ [Concomitant]
     Dosage: UNK
  20. PROTHIADEN [Concomitant]
     Active Substance: DOTHIEPIN HYDROCHLORIDE
     Dosage: 25 MILLIGRAM (25 MG, HS)
  21. SERC                               /00034201/ [Concomitant]
     Dosage: 1 MILLIGRAM, TID (1 MG, TID)
     Route: 050

REACTIONS (56)
  - Fatigue [Recovering/Resolving]
  - Spinal pain [Not Recovered/Not Resolved]
  - Balance disorder [Not Recovered/Not Resolved]
  - Urinary incontinence [Recovering/Resolving]
  - Back pain [Not Recovered/Not Resolved]
  - Anal incontinence [Not Recovered/Not Resolved]
  - Paraesthesia [Not Recovered/Not Resolved]
  - Kidney infection [Recovered/Resolved]
  - Chest discomfort [Recovering/Resolving]
  - Multiple sclerosis relapse [Not Recovered/Not Resolved]
  - Diplopia [Unknown]
  - Condition aggravated [Unknown]
  - Intervertebral disc injury [Not Recovered/Not Resolved]
  - Muscular weakness [Not Recovered/Not Resolved]
  - Loss of personal independence in daily activities [Not Recovered/Not Resolved]
  - Dizziness [Not Recovered/Not Resolved]
  - Neuralgia [Recovering/Resolving]
  - Burning sensation [Not Recovered/Not Resolved]
  - Mobility decreased [Recovering/Resolving]
  - Ocular hyperaemia [Unknown]
  - Lower respiratory tract infection [Recovered/Resolved]
  - Grip strength decreased [Not Recovered/Not Resolved]
  - Gait disturbance [Not Recovered/Not Resolved]
  - Haematochezia [Not Recovered/Not Resolved]
  - Dysarthria [Unknown]
  - Intervertebral disc disorder [Not Recovered/Not Resolved]
  - Drug ineffective [Unknown]
  - Dysphagia [Recovering/Resolving]
  - Tinnitus [Unknown]
  - Gastrointestinal disorder [Unknown]
  - Frustration tolerance decreased [Not Recovered/Not Resolved]
  - Speech disorder [Not Recovered/Not Resolved]
  - Muscle spasms [Unknown]
  - Band sensation [Not Recovered/Not Resolved]
  - Nausea [Unknown]
  - Arthralgia [Not Recovered/Not Resolved]
  - Sensation of foreign body [Recovering/Resolving]
  - Vertigo [Recovering/Resolving]
  - Renal function test abnormal [Unknown]
  - Frequent bowel movements [Not Recovered/Not Resolved]
  - Fibromyalgia [Not Recovered/Not Resolved]
  - Thyroid function test abnormal [Unknown]
  - Herpes zoster [Recovering/Resolving]
  - Diarrhoea [Not Recovered/Not Resolved]
  - Pain in extremity [Not Recovered/Not Resolved]
  - Abdominal pain [Not Recovered/Not Resolved]
  - Pharyngitis streptococcal [Recovering/Resolving]
  - Osteoarthritis [Not Recovered/Not Resolved]
  - Headache [Recovering/Resolving]
  - Arthritis [Not Recovered/Not Resolved]
  - Rash [Recovered/Resolved]
  - Diverticulum [Not Recovered/Not Resolved]
  - Weight decreased [Not Recovered/Not Resolved]
  - Inflammation [Not Recovered/Not Resolved]
  - Swelling [Not Recovered/Not Resolved]
  - Visual impairment [Not Recovered/Not Resolved]

NARRATIVE: CASE EVENT DATE: 20170601
